FAERS Safety Report 7156804-8 (Version None)
Quarter: 2010Q4

REPORT INFORMATION
  Report Type: 
  Country: None (occurrence: None)
  Receive Date: 20101214
  Receipt Date: 20101129
  Transmission Date: 20110411
  Serious: No
  Sender: FDA-Public Use
  Company Number: US-PFIZER INC-2010161802

PATIENT
  Age: 41 Year
  Sex: Male

DRUGS (1)
  1. ADVIL [Suspect]
     Dosage: UNK
     Dates: start: 20090101, end: 20091201

REACTIONS (4)
  - DYSPHAGIA [None]
  - ORAL DISCOMFORT [None]
  - RETCHING [None]
  - VOMITING [None]
